FAERS Safety Report 19011255 (Version 2)
Quarter: 2021Q2

REPORT INFORMATION
  Report Type: Report from Study
  Country: US (occurrence: US)
  Receive Date: 20210315
  Receipt Date: 20210409
  Transmission Date: 20210717
  Serious: No
  Sender: FDA-Public Use
  Company Number: NVSC2021US051700

PATIENT
  Sex: Female

DRUGS (1)
  1. KISQALI [Suspect]
     Active Substance: RIBOCICLIB
     Indication: PRODUCT USED FOR UNKNOWN INDICATION
     Dosage: UNK
     Route: 048

REACTIONS (10)
  - Fatigue [Unknown]
  - Diarrhoea [Unknown]
  - Product dose omission issue [Unknown]
  - Arthralgia [Unknown]
  - Carbohydrate antigen 15-3 increased [Unknown]
  - Cough [Unknown]
  - Abdominal discomfort [Unknown]
  - Food craving [Unknown]
  - Hypersensitivity [Unknown]
  - Decreased appetite [Unknown]
